FAERS Safety Report 8832600 (Version 1)
Quarter: 2012Q4

REPORT INFORMATION
  Report Type: 
  Country: US (occurrence: US)
  Receive Date: 20121010
  Receipt Date: 20121010
  Transmission Date: 20130627
  Serious: No
  Sender: FDA-Public Use
  Company Number: US-PFIZER INC-2012249539

PATIENT
  Sex: Female

DRUGS (2)
  1. ADVIL [Suspect]
     Indication: MIGRAINE
     Dosage: UNK
     Route: 048
  2. ADVIL [Suspect]
     Dosage: 2 tablets, UNK
     Dates: start: 20121007

REACTIONS (2)
  - Lip oedema [Unknown]
  - Swelling face [Unknown]
